FAERS Safety Report 10192076 (Version 1)
Quarter: 2014Q2

REPORT INFORMATION
  Report Type: Spontaneous
  Country: FR (occurrence: CM)
  Receive Date: 20140523
  Receipt Date: 20140523
  Transmission Date: 20141212
  Serious: Yes (Other)
  Sender: FDA-Public Use
  Company Number: FR-JNJFOC-20140512061

PATIENT
  Age: 46 Year
  Sex: Female

DRUGS (6)
  1. PREZISTA [Suspect]
     Indication: HIV INFECTION
     Dosage: FOR 28 DAYS
     Route: 048
  2. TRUVADA [Suspect]
     Indication: HIV INFECTION
     Dosage: FOR 28 DAYS
     Route: 065
  3. NORVIR [Suspect]
     Indication: HIV INFECTION
     Dosage: FOR 28 DAYS
     Route: 065
  4. ADIAZINE [Suspect]
     Indication: CEREBRAL TOXOPLASMOSIS
     Route: 065
  5. MALOCIDE [Suspect]
     Indication: CEREBRAL TOXOPLASMOSIS
     Route: 065
  6. KEPPRA [Suspect]
     Indication: CEREBRAL TOXOPLASMOSIS
     Route: 065

REACTIONS (8)
  - Drug reaction with eosinophilia and systemic symptoms [Unknown]
  - Eosinophilia [Unknown]
  - Hepatitis [Unknown]
  - Cytomegalovirus infection [Unknown]
  - Alanine aminotransferase increased [Unknown]
  - Cholestasis [Unknown]
  - Mycobacterial infection [Unknown]
  - Eosinophilic pustular folliculitis [Unknown]
